FAERS Safety Report 14003427 (Version 1)
Quarter: 2017Q3

REPORT INFORMATION
  Report Type: Other
  Country: GB (occurrence: US)
  Receive Date: 20170922
  Receipt Date: 20170922
  Transmission Date: 20171128
  Serious: Yes (Death, Life-Threatening, Other)
  Sender: FDA-Public Use
  Company Number: US-INTERNATIONAL MEDICATION SYSTEMS, LIMITED-2027450

PATIENT
  Age: 71 Year
  Sex: Male

DRUGS (4)
  1. LIDOCAINE. [Suspect]
     Active Substance: LIDOCAINE
     Indication: VENTRICULAR TACHYCARDIA
  2. AMIODARONE HYDROCHLORIDE. [Suspect]
     Active Substance: AMIODARONE HYDROCHLORIDE
  3. LIDOCAINE. [Suspect]
     Active Substance: LIDOCAINE
     Indication: VENTRICULAR FIBRILLATION
  4. QUINIDINE [Suspect]
     Active Substance: QUINIDINE

REACTIONS (4)
  - Drug ineffective [Fatal]
  - Death [Fatal]
  - Septic shock [None]
  - Multiple organ dysfunction syndrome [None]
